FAERS Safety Report 4508973-3 (Version None)
Quarter: 2004Q4

REPORT INFORMATION
  Report Type: 
  Country: None (occurrence: None)
  Receive Date: 20041122
  Receipt Date: 20041122
  Transmission Date: 20050328
  Serious: Yes (Life-Threatening, Hospitalization)
  Sender: FDA-Public Use
  Company Number: None

PATIENT
  Age: 33 Year
  Sex: Female
  Weight: 79.8331 kg

DRUGS (3)
  1. HURRICAINE SPRAY - BENZOCAINE - SPRAY T O THE BACK OF THROAT [Suspect]
     Indication: ECHOCARDIOGRAM
     Dosage: AS DIRECTED PRN ORAL
     Route: 048
     Dates: start: 20040625, end: 20040625
  2. MIDAZOLAM HCL [Concomitant]
  3. NUBAIN [Concomitant]

REACTIONS (3)
  - ACQUIRED METHAEMOGLOBINAEMIA [None]
  - CYANOSIS [None]
  - PROCEDURAL COMPLICATION [None]
